FAERS Safety Report 7749180-0 (Version None)
Quarter: 2011Q3

REPORT INFORMATION
  Report Type: 
  Country: None (occurrence: None)
  Receive Date: 20110907
  Receipt Date: 20110823
  Transmission Date: 20111222
  Serious: Yes (Hospitalization)
  Sender: FDA-Public Use
  Company Number: WAES 1108USA03037

PATIENT
  Age: 62 Year
  Sex: Female

DRUGS (2)
  1. CEFAZOLIN SODIUM [Concomitant]
  2. JANUVIA [Suspect]
     Indication: TYPE 2 DIABETES MELLITUS
     Dosage: PO
     Route: 048
     Dates: start: 20100302

REACTIONS (7)
  - BLOOD GLUCOSE INCREASED [None]
  - THYROID CANCER [None]
  - WEIGHT DECREASED [None]
  - HYPOAESTHESIA [None]
  - DYSPHAGIA [None]
  - CALCULUS URETERIC [None]
  - URETERIC STENOSIS [None]
